FAERS Safety Report 6803336-X (Version None)
Quarter: 2010Q2

REPORT INFORMATION
  Report Type: 
  Country: None (occurrence: None)
  Receive Date: 20100628
  Receipt Date: 20100622
  Transmission Date: 20101027
  Serious: Yes (Other)
  Sender: FDA-Public Use
  Company Number: US-GILEAD-2010-0029475

PATIENT
  Sex: Male

DRUGS (16)
  1. LETAIRIS [Suspect]
     Indication: PULMONARY ARTERIAL HYPERTENSION
     Route: 048
     Dates: start: 20100427, end: 20100501
  2. REVATIO [Concomitant]
  3. ASPIR-81 [Concomitant]
  4. LASIX [Concomitant]
  5. ALDACTONE [Concomitant]
  6. BUSPAR [Concomitant]
  7. DEPAKOTE ER [Concomitant]
  8. LEXAPRO [Concomitant]
  9. CEPHULAC [Concomitant]
  10. ZYPREXA [Concomitant]
  11. PRILOSEC [Concomitant]
  12. PSEUDOEPHEDRINE HCL [Concomitant]
  13. MYLICON [Concomitant]
  14. DESYREL [Concomitant]
  15. MULTI-VITAMIN [Concomitant]
  16. POTASSIUM CHLORIDE [Concomitant]

REACTIONS (2)
  - RASH [None]
  - SYSTEMIC LUPUS ERYTHEMATOSUS [None]
